FAERS Safety Report 4951069-7 (Version None)
Quarter: 2006Q1

REPORT INFORMATION
  Report Type: 
  Country: None (occurrence: None)
  Receive Date: 20060322
  Receipt Date: 20060224
  Transmission Date: 20060701
  Serious: Yes (Disabling)
  Sender: FDA-Public Use
  Company Number: US-MERCK-0602USA05612

PATIENT
  Sex: Female

DRUGS (1)
  1. VIOXX [Suspect]
     Route: 048
     Dates: start: 19991123, end: 20040901

REACTIONS (3)
  - ANXIETY [None]
  - EMOTIONAL DISORDER [None]
  - THROMBOEMBOLIC STROKE [None]
